FAERS Safety Report 4595327-7 (Version None)
Quarter: 2005Q1

REPORT INFORMATION
  Report Type: 
  Country: None (occurrence: None)
  Receive Date: 20050223
  Receipt Date: 20050207
  Transmission Date: 20050727
  Serious: Yes (Hospitalization)
  Sender: FDA-Public Use
  Company Number: 2005AP01044

PATIENT
  Age: 60 Year
  Sex: Male

DRUGS (1)
  1. FOSCAVIR [Suspect]
     Indication: ADULT T-CELL LYMPHOMA/LEUKAEMIA
     Dosage: ONE INJECTION EVERY FOUR DAYS

REACTIONS (1)
  - CEREBRAL INFARCTION [None]
